FAERS Safety Report 19508506 (Version 1)
Quarter: 2021Q3

REPORT INFORMATION
  Report Type: Report from Study
  Country: SE (occurrence: SE)
  Receive Date: 20210708
  Receipt Date: 20210708
  Transmission Date: 20211014
  Serious: Yes (Hospitalization)
  Sender: FDA-Public Use
  Company Number: SE-SEAGEN-2021SGN03593

PATIENT

DRUGS (15)
  1. ETOPOSIDE. [Suspect]
     Active Substance: ETOPOSIDE
     Dosage: 340 MILLIGRAM/SQ. METER
     Route: 065
     Dates: start: 20200520
  2. CALCIUM CHLORIDE. [Concomitant]
     Active Substance: CALCIUM CHLORIDE
     Dosage: 750 MILLIGRAM
     Route: 065
     Dates: start: 20200428, end: 20200506
  3. DACARBAZINE. [Suspect]
     Active Substance: DACARBAZINE
     Dosage: 560 MILLIGRAM/SQ. METER
     Route: 065
     Dates: start: 20200521
  4. DEXAMETHASONE. [Suspect]
     Active Substance: DEXAMETHASONE
     Indication: HODGKIN^S DISEASE
     Dosage: 40 MILLIGRAM/SQ. METER
     Route: 065
     Dates: start: 20200415
  5. ETOPOSIDE. [Suspect]
     Active Substance: ETOPOSIDE
     Indication: HODGKIN^S DISEASE
     Dosage: 340 MILLIGRAM/SQ. METER
     Route: 065
     Dates: start: 20200515
  6. DOXORUBICIN [DOXORUBICIN HYDROCHLORIDE] [Suspect]
     Active Substance: DOXORUBICIN HYDROCHLORIDE
     Indication: HODGKIN^S DISEASE
     Dosage: 90 MILLIGRAM/SQ. METER
     Route: 065
     Dates: start: 20200415
  7. ACYCLOVIR. [Concomitant]
     Active Substance: ACYCLOVIR
     Dosage: 400 MILLIGRAM/SQ. METER
     Route: 065
     Dates: start: 20200224, end: 20200608
  8. DOXORUBICIN [DOXORUBICIN HYDROCHLORIDE] [Suspect]
     Active Substance: DOXORUBICIN HYDROCHLORIDE
     Dosage: 90 MILLIGRAM/SQ. METER
     Route: 065
     Dates: start: 20200520
  9. DACARBAZINE. [Suspect]
     Active Substance: DACARBAZINE
     Indication: HODGKIN^S DISEASE
     Dosage: 560 MILLIGRAM/SQ. METER
     Route: 065
     Dates: start: 20200416
  10. CYCLOPHOSPHAMIDE. [Suspect]
     Active Substance: CYCLOPHOSPHAMIDE
     Indication: HODGKIN^S DISEASE
     Dosage: 2800 MILLIGRAM/SQ. METER
     Route: 065
     Dates: start: 20200415
  11. DEXAMETHASONE. [Suspect]
     Active Substance: DEXAMETHASONE
     Dosage: 40 MILLIGRAM/SQ. METER
     Route: 065
     Dates: start: 20200520
  12. SULFAMETOXAZOL/TRIMETOPRIM [Concomitant]
     Active Substance: SULFAMETHOXAZOLE\TRIMETHOPRIM
     Dosage: 800 MILLIGRAM
     Route: 065
     Dates: start: 20200224, end: 20200908
  13. BRENTUXIMAB VEDOTIN?MPI [Suspect]
     Active Substance: BRENTUXIMAB VEDOTIN
     Indication: HODGKIN^S DISEASE
     Dosage: 180 MILLIGRAM/KILOGRAM
     Route: 065
     Dates: start: 20200414
  14. BRENTUXIMAB VEDOTIN?MPI [Suspect]
     Active Substance: BRENTUXIMAB VEDOTIN
     Dosage: 120 MILLIGRAM/KILOGRAM
     Route: 065
     Dates: start: 20200519
  15. CYCLOPHOSPHAMIDE. [Suspect]
     Active Substance: CYCLOPHOSPHAMIDE
     Dosage: 2800 MILLIGRAM/SQ. METER
     Route: 065
     Dates: start: 20200520

REACTIONS (1)
  - Venous thrombosis [Recovered/Resolved]

NARRATIVE: CASE EVENT DATE: 20200506
